FAERS Safety Report 5404732-8 (Version None)
Quarter: 2007Q3

REPORT INFORMATION
  Report Type: 
  Country: None (occurrence: None)
  Receive Date: 20070801
  Receipt Date: 20070716
  Transmission Date: 20080115
  Serious: No
  Sender: FDA-Public Use
  Company Number: 2007EU000905

PATIENT
  Age: 24 Year
  Sex: Female

DRUGS (5)
  1. PROGRAF [Suspect]
     Indication: DERMATITIS ATOPIC
     Dosage: 0.1 %, BID, TOPICAL; 0.03 %, BID, TOPICAL
     Route: 061
     Dates: start: 20050127, end: 20050427
  2. PROGRAF [Suspect]
     Indication: DERMATITIS ATOPIC
     Dosage: 0.1 %, BID, TOPICAL; 0.03 %, BID, TOPICAL
     Route: 061
     Dates: start: 20060419, end: 20060905
  3. PROGRAF [Suspect]
     Indication: DERMATITIS ATOPIC
     Dosage: 0.1 %, BID, TOPICAL; 0.03 %, BID, TOPICAL
     Route: 061
     Dates: start: 20060419, end: 20060905
  4. PROGRAF [Suspect]
     Indication: DERMATITIS ATOPIC
     Dosage: 0.1 %, BID, TOPICAL; 0.03 %, BID, TOPICAL
     Route: 061
     Dates: start: 20060905, end: 20070213
  5. PROGRAF [Suspect]
     Indication: DERMATITIS ATOPIC
     Dosage: 0.1 %, BID, TOPICAL; 0.03 %, BID, TOPICAL
     Route: 061
     Dates: start: 20060905, end: 20070213

REACTIONS (1)
  - PERIODONTITIS [None]
